FAERS Safety Report 11509627 (Version 1)
Quarter: 2015Q3

REPORT INFORMATION
  Report Type: Spontaneous
  Country: US (occurrence: US)
  Receive Date: 20150915
  Receipt Date: 20150915
  Transmission Date: 20151125
  Serious: No
  Sender: FDA-Public Use
  Company Number: US-JNJFOC-20150806981

PATIENT
  Sex: Male
  Weight: 97.52 kg

DRUGS (3)
  1. TYLENOL EXTRA STRENGTH [Suspect]
     Active Substance: ACETAMINOPHEN
     Indication: BACK PAIN
     Dosage: AS NEEDED
     Route: 048
  2. ANTI-HYPERTENSION MEDICATION, NOS [Concomitant]
     Indication: HYPERTENSION
     Route: 065
  3. COUMADIN [Concomitant]
     Active Substance: WARFARIN SODIUM
     Indication: PRODUCT USED FOR UNKNOWN INDICATION
     Route: 065

REACTIONS (4)
  - Product packaging issue [Unknown]
  - Product label issue [Unknown]
  - Therapeutic response decreased [Unknown]
  - Incorrect dose administered [Unknown]
